FAERS Safety Report 16322489 (Version 1)
Quarter: 2019Q2

REPORT INFORMATION
  Report Type: Spontaneous
  Country: SI (occurrence: SI)
  Receive Date: 20190516
  Receipt Date: 20190516
  Transmission Date: 20190711
  Serious: Yes (Hospitalization)
  Sender: FDA-Public Use
  Company Number: PHHY2019SI110859

PATIENT
  Age: 45 Year
  Sex: Female

DRUGS (6)
  1. METHOTREXATE (METHOTREXATE SODIUM) [Suspect]
     Active Substance: METHOTREXATE SODIUM
     Indication: PSORIATIC ARTHROPATHY
     Dosage: 10 MG, QW
     Route: 048
     Dates: start: 20181122
  2. METHOTREXATE (METHOTREXATE SODIUM) [Suspect]
     Active Substance: METHOTREXATE SODIUM
     Dosage: 10 MG, QW
     Route: 048
     Dates: start: 20190321
  3. TRITTICO [Concomitant]
     Active Substance: TRAZODONE HYDROCHLORIDE
     Indication: PRODUCT USED FOR UNKNOWN INDICATION
     Dosage: 150 MG, QD
     Route: 065
     Dates: start: 20190314
  4. FOLACIN [Concomitant]
     Indication: PRODUCT USED FOR UNKNOWN INDICATION
     Dosage: 5 MG, UNK
     Route: 065
  5. NAKLOFEN DUO [Concomitant]
     Indication: PRODUCT USED FOR UNKNOWN INDICATION
     Dosage: 75 MG, BID ( AS NECESSARY)
     Route: 065
     Dates: start: 2017
  6. NAKLOFEN DUO [Concomitant]
     Dosage: 75 MG, BID ( REGULAR HERAPY WITH REGIMEN 2X1)
     Route: 065
     Dates: start: 20190314

REACTIONS (1)
  - Hypersensitivity pneumonitis [Unknown]

NARRATIVE: CASE EVENT DATE: 20190318
